FAERS Safety Report 14716834 (Version 2)
Quarter: 2018Q3

REPORT INFORMATION
  Report Type: Spontaneous
  Country: SK (occurrence: SK)
  Receive Date: 20180404
  Receipt Date: 20180921
  Transmission Date: 20181010
  Serious: Yes (Other)
  Sender: FDA-Public Use
  Company Number: SK-MYLANLABS-2018M1021494

PATIENT
  Age: 60 Year
  Sex: Male

DRUGS (12)
  1. ETOPOSIDE. [Suspect]
     Active Substance: ETOPOSIDE
     Indication: MANTLE CELL LYMPHOMA RECURRENT
     Dosage: UNK
     Route: 065
     Dates: start: 20150701, end: 20150901
  2. VINCRISTINE SULFATE. [Suspect]
     Active Substance: VINCRISTINE SULFATE
     Indication: MANTLE CELL LYMPHOMA RECURRENT
     Dosage: UNK, CYCLE
     Route: 065
     Dates: start: 2012
  3. ETOPOSIDE. [Suspect]
     Active Substance: ETOPOSIDE
     Indication: MANTLE CELL LYMPHOMA
     Dosage: UNK, CYCLE
     Dates: start: 201507, end: 201509
  4. PREDNISONE. [Suspect]
     Active Substance: PREDNISONE
     Indication: MANTLE CELL LYMPHOMA
     Dosage: UNK, CYCLE
     Route: 065
     Dates: start: 2012
  5. RITUXIMAB. [Suspect]
     Active Substance: RITUXIMAB
     Indication: MANTLE CELL LYMPHOMA RECURRENT
     Dosage: UNK, CYCLE
     Route: 065
     Dates: start: 201507, end: 201509
  6. DOXORUBICIN [Concomitant]
     Active Substance: DOXORUBICIN
     Indication: MANTLE CELL LYMPHOMA RECURRENT
     Route: 065
  7. VINCRISTINE SULFATE. [Suspect]
     Active Substance: VINCRISTINE SULFATE
     Indication: MANTLE CELL LYMPHOMA
     Dosage: UNK, CYCLE
     Dates: start: 201507, end: 201509
  8. CYCLOPHOSPHAMIDE. [Suspect]
     Active Substance: CYCLOPHOSPHAMIDE
     Indication: MANTLE CELL LYMPHOMA RECURRENT
     Dosage: UNK UNK, CYCLE
     Route: 065
     Dates: start: 2012
  9. PREDNISOLONE. [Concomitant]
     Active Substance: PREDNISOLONE
     Indication: MANTLE CELL LYMPHOMA RECURRENT
     Route: 065
  10. CYCLOPHOSPHAMIDE. [Suspect]
     Active Substance: CYCLOPHOSPHAMIDE
     Indication: MANTLE CELL LYMPHOMA
     Dosage: UNK, CYCLE
     Dates: start: 201507, end: 201509
  11. PREDNISONE. [Suspect]
     Active Substance: PREDNISONE
     Dosage: UNK, CYCLE
     Route: 065
     Dates: start: 201507, end: 201509
  12. RITUXIMAB. [Suspect]
     Active Substance: RITUXIMAB
     Indication: MANTLE CELL LYMPHOMA
     Dosage: UNK
     Route: 065
     Dates: start: 2012

REACTIONS (6)
  - Sinusitis [Unknown]
  - Infection [Unknown]
  - Stomatitis [Unknown]
  - Angina pectoris [Unknown]
  - Palpitations [Unknown]
  - Constipation [Unknown]

NARRATIVE: CASE EVENT DATE: 2015
